FAERS Safety Report 8216097-7 (Version None)
Quarter: 2012Q1

REPORT INFORMATION
  Report Type: 
  Country: None (occurrence: None)
  Receive Date: 20120316
  Receipt Date: 20120313
  Transmission Date: 20120608
  Serious: Yes (Other)
  Sender: FDA-Public Use
  Company Number: US-BAYER-2011-024593

PATIENT
  Sex: Female
  Weight: 133 kg

DRUGS (27)
  1. RENAGEL [Concomitant]
  2. COUMADIN [Concomitant]
  3. DILTIAZEM HCL [Concomitant]
  4. HYDRALAZINE HCL [Concomitant]
  5. MULTIHANCE [Suspect]
     Indication: NUCLEAR MAGNETIC RESONANCE IMAGING
  6. FUROSEMIDE [Concomitant]
  7. LISINOPRIL [Concomitant]
  8. SENSIPAR [Concomitant]
  9. OPTIMARK [Suspect]
     Indication: NUCLEAR MAGNETIC RESONANCE IMAGING
  10. OPTIMARK [Suspect]
     Indication: ANGIOGRAM
  11. PROCRIT [Concomitant]
  12. ZAROXOLYN [Concomitant]
  13. ZOLOFT [Concomitant]
  14. PENTOXIFYLLINE [Concomitant]
  15. MAGNEVIST [Suspect]
     Indication: ANGIOGRAM
  16. ARANESP [Concomitant]
  17. MAGNEVIST [Suspect]
     Indication: NUCLEAR MAGNETIC RESONANCE IMAGING
     Dosage: UNK
  18. PROHANCE [Suspect]
     Indication: NUCLEAR MAGNETIC RESONANCE IMAGING
  19. VASOTEC [Concomitant]
  20. CARVEDILOL [Concomitant]
  21. ISOSORBIDE MONONITRATE [Concomitant]
  22. FERRLECIT [Concomitant]
  23. PROHANCE [Suspect]
     Indication: ANGIOGRAM
  24. EPOGEN [Concomitant]
  25. OMNISCAN [Suspect]
     Indication: NUCLEAR MAGNETIC RESONANCE IMAGING
     Dosage: UNK
  26. OMNISCAN [Suspect]
     Indication: ANGIOGRAM
  27. MULTIHANCE [Suspect]
     Indication: ANGIOGRAM

REACTIONS (12)
  - SKIN MASS [None]
  - OEDEMA PERIPHERAL [None]
  - NEPHROGENIC SYSTEMIC FIBROSIS [None]
  - ERYTHEMA [None]
  - SKIN FIBROSIS [None]
  - SKIN TIGHTNESS [None]
  - PAIN IN EXTREMITY [None]
  - MUSCULOSKELETAL STIFFNESS [None]
  - SKIN INDURATION [None]
  - SKIN HYPERPIGMENTATION [None]
  - PAIN [None]
  - SKIN PLAQUE [None]
